FAERS Safety Report 21644405 (Version 2)
Quarter: 2022Q4

REPORT INFORMATION
  Report Type: Report from Study
  Country: PA (occurrence: PA)
  Receive Date: 20221125
  Receipt Date: 20221208
  Transmission Date: 20230113
  Serious: Yes (Other)
  Sender: FDA-Public Use
  Company Number: PA-002147023-NVSC2022PA265241

PATIENT
  Age: 46 Year
  Sex: Female

DRUGS (8)
  1. KISQALI [Suspect]
     Active Substance: RIBOCICLIB
     Indication: Breast cancer metastatic
     Dosage: 600 MG, QD
     Route: 048
     Dates: start: 20221103
  2. KISQALI [Suspect]
     Active Substance: RIBOCICLIB
     Indication: Metastases to spine
     Dosage: 3 DOSAGE FORM, QD (600 MG, (3X200MG))
     Route: 048
     Dates: start: 20221108, end: 20221129
  3. KISQALI [Suspect]
     Active Substance: RIBOCICLIB
     Indication: Metastases to bone
     Dosage: UNK (SECOND CYCLE BEGINS)
     Route: 065
     Dates: start: 20221206
  4. ANASTROZOLE [Suspect]
     Active Substance: ANASTROZOLE
     Indication: Breast cancer
     Dosage: 1 DOSAGE FORM, QD ( END OF OCTOBER 2022)
     Route: 065
     Dates: start: 202210
  5. ANASTROZOLE [Suspect]
     Active Substance: ANASTROZOLE
     Indication: Metastases to spine
  6. ANASTROZOLE [Suspect]
     Active Substance: ANASTROZOLE
     Indication: Metastases to bone
  7. VITAMIN C [Concomitant]
     Active Substance: ASCORBIC ACID
     Indication: Product used for unknown indication
     Dosage: UNK
     Route: 065
  8. CITRAGEL [Concomitant]
     Indication: Blood calcium decreased
     Dosage: UNK
     Route: 065
     Dates: start: 20220919

REACTIONS (9)
  - Metastases to bone [Unknown]
  - Metastases to lung [Unknown]
  - Haemoglobin increased [Unknown]
  - Decreased immune responsiveness [Unknown]
  - Stress [Unknown]
  - Asthenia [Not Recovered/Not Resolved]
  - Nausea [Unknown]
  - Diarrhoea [Recovering/Resolving]
  - Inappropriate schedule of product administration [Unknown]

NARRATIVE: CASE EVENT DATE: 20221001
